FAERS Safety Report 5834852-5 (Version None)
Quarter: 2008Q3

REPORT INFORMATION
  Report Type: 
  Country: None (occurrence: None)
  Receive Date: 20080729
  Receipt Date: 20080520
  Transmission Date: 20090109
  Serious: Yes (Other)
  Sender: FDA-Public Use
  Company Number: 8032949

PATIENT
  Age: 12 Month
  Sex: Male

DRUGS (2)
  1. PREDNISOLONE [Suspect]
     Dosage: PO
     Route: 048
  2. PAMIDRONATE DISODIUM [Concomitant]

REACTIONS (1)
  - HYPERTENSION [None]
